FAERS Safety Report 6369251-3 (Version None)
Quarter: 2009Q3

REPORT INFORMATION
  Report Type: 
  Country: None (occurrence: None)
  Receive Date: 20090916
  Receipt Date: 20090908
  Transmission Date: 20100115
  Serious: Yes (Life-Threatening)
  Sender: FDA-Public Use
  Company Number: ADR20242009

PATIENT
  Age: 49 Year
  Sex: Male

DRUGS (4)
  1. SERTRALINE HCL [Suspect]
     Dosage: 50MG ORAL
     Route: 048
  2. LANSOPRAZOLE [Concomitant]
  3. OLANZAPINE [Concomitant]
  4. ZOPICLONE [Concomitant]

REACTIONS (5)
  - ALCOHOL USE [None]
  - BASE EXCESS INCREASED [None]
  - BLOOD PRESSURE INCREASED [None]
  - HEART RATE INCREASED [None]
  - PANCREATIC HAEMORRHAGE [None]
